FAERS Safety Report 7129075-6 (Version None)
Quarter: 2010Q4

REPORT INFORMATION
  Report Type: 
  Country: None (occurrence: None)
  Receive Date: 20101130
  Receipt Date: 20101123
  Transmission Date: 20110411
  Serious: Yes (Hospitalization)
  Sender: FDA-Public Use
  Company Number: US-US-EMD SERONO, INC.-7004959

PATIENT
  Sex: Male

DRUGS (4)
  1. REBIF [Suspect]
     Indication: MULTIPLE SCLEROSIS
     Route: 058
     Dates: start: 20070101
  2. AMANTADINE [Concomitant]
     Dates: start: 20100101, end: 20100101
  3. AMPYRA [Concomitant]
     Dates: start: 20100101
  4. QUINAPRIL [Concomitant]
     Indication: HYPERTENSION

REACTIONS (4)
  - FATIGUE [None]
  - INTERVERTEBRAL DISC SPACE NARROWING [None]
  - JOINT SWELLING [None]
  - OEDEMA PERIPHERAL [None]
